FAERS Safety Report 6288828-7 (Version None)
Quarter: 2009Q3

REPORT INFORMATION
  Report Type: 
  Country: None (occurrence: None)
  Receive Date: 20090729
  Receipt Date: 20090505
  Transmission Date: 20100115
  Serious: Yes (Hospitalization)
  Sender: FDA-Public Use
  Company Number: GB-PFIZER INC-2009246509

PATIENT
  Age: 19 Year

DRUGS (4)
  1. SERTRALINE HCL [Suspect]
     Indication: DEPRESSION
     Dosage: 10 X 50 MG
     Route: 048
     Dates: start: 20090101
  2. SERTRALINE HCL [Suspect]
     Dosage: 500 MG, ONCE
     Route: 048
     Dates: start: 20090501
  3. TRAZODONE HCL [Suspect]
     Indication: DEPRESSION
     Dosage: 40 X 50 MG
     Route: 048
     Dates: start: 20090101, end: 20090401
  4. TRAZODONE HCL [Suspect]
     Dosage: 2000 MG, ONCE
     Route: 048
     Dates: start: 20090501, end: 20090501

REACTIONS (1)
  - OVERDOSE [None]
